FAERS Safety Report 10485681 (Version 2)
Quarter: 2014Q4

REPORT INFORMATION
  Report Type: Spontaneous
  Country: JP (occurrence: JP)
  Receive Date: 20141001
  Receipt Date: 20141001
  Transmission Date: 20150528
  Serious: Yes (Hospitalization, Other)
  Sender: FDA-Public Use
  Company Number: JP-UCBSA-114493

PATIENT
  Age: 30 Year
  Sex: Male

DRUGS (4)
  1. ALEVIATIN [Concomitant]
     Active Substance: PHENYTOIN SODIUM
  2. RIVOTRIL [Concomitant]
     Active Substance: CLONAZEPAM
  3. KEPPRA [Suspect]
     Active Substance: LEVETIRACETAM
     Indication: SEIZURE
     Dosage: STRENGTH: 500 MG
     Route: 048
  4. SELENICA-R [Suspect]
     Active Substance: SELENIUM
     Indication: SEIZURE
     Route: 048

REACTIONS (3)
  - Pancreatitis acute [Recovering/Resolving]
  - Status epilepticus [Recovering/Resolving]
  - Seizure [Recovering/Resolving]

NARRATIVE: CASE EVENT DATE: 20140228
